FAERS Safety Report 16918831 (Version 1)
Quarter: 2019Q4

REPORT INFORMATION
  Report Type: Spontaneous
  Country: MT (occurrence: MT)
  Receive Date: 20191015
  Receipt Date: 20191015
  Transmission Date: 20200122
  Serious: Yes (Hospitalization)
  Sender: FDA-Public Use
  Company Number: MT-TEVA-2019-MT-1121943

PATIENT
  Age: 80 Year
  Sex: Female

DRUGS (6)
  1. OMEPRAZOLE. [Interacting]
     Active Substance: OMEPRAZOLE
     Indication: HELICOBACTER INFECTION
     Dosage: 20 MILLIGRAM DAILY;
     Route: 065
  2. CLARITHROMYCIN. [Suspect]
     Active Substance: CLARITHROMYCIN
     Indication: HELICOBACTER INFECTION
     Dosage: 1000 MILLIGRAM DAILY;
     Route: 065
  3. DIGOXIN. [Interacting]
     Active Substance: DIGOXIN
     Indication: HEART RATE ABNORMAL
     Dosage: .125 MILLIGRAM DAILY;
     Route: 065
  4. AMOXICILLIN. [Concomitant]
     Active Substance: AMOXICILLIN
     Indication: HELICOBACTER INFECTION
     Dosage: 2 GRAM DAILY;
     Route: 065
  5. OMEPRAZOLE. [Interacting]
     Active Substance: OMEPRAZOLE
     Dosage: 40 MILLIGRAM DAILY;
     Route: 065
  6. WARFARIN [Concomitant]
     Active Substance: WARFARIN
     Route: 065

REACTIONS (3)
  - Toxicity to various agents [Recovering/Resolving]
  - Acute kidney injury [Recovering/Resolving]
  - Drug interaction [Recovering/Resolving]
